FAERS Safety Report 24001820 (Version 1)
Quarter: 2024Q2

REPORT INFORMATION
  Report Type: Spontaneous
  Country: US (occurrence: US)
  Receive Date: 20240622
  Receipt Date: 20240622
  Transmission Date: 20240716
  Serious: Yes (Other)
  Sender: FDA-Public Use
  Company Number: US-LEADINGPHARMA-US-2024LEASPO00233

PATIENT
  Sex: Female

DRUGS (1)
  1. IMIPRAMINE HYDROCHLORIDE [Suspect]
     Active Substance: IMIPRAMINE HYDROCHLORIDE
     Indication: Depression
     Route: 065

REACTIONS (3)
  - Hallucination, visual [Not Recovered/Not Resolved]
  - Condition aggravated [Not Recovered/Not Resolved]
  - Nightmare [Not Recovered/Not Resolved]
